FAERS Safety Report 24405127 (Version 1)
Quarter: 2024Q4

REPORT INFORMATION
  Report Type: Spontaneous
  Country: CN (occurrence: CN)
  Receive Date: 20241007
  Receipt Date: 20241007
  Transmission Date: 20250114
  Serious: No
  Sender: ROCHE
  Company Number: CN-ROCHE-3563143

PATIENT
  Age: 53 Year
  Sex: Female
  Weight: 79.0 kg

DRUGS (20)
  1. GAZYVA [Suspect]
     Active Substance: OBINUTUZUMAB
     Indication: Diffuse large B-cell lymphoma
     Route: 042
     Dates: start: 20240318
  2. POLIVY [Suspect]
     Active Substance: POLATUZUMAB VEDOTIN-PIIQ
     Indication: Diffuse large B-cell lymphoma
     Dosage: POLA-BR
     Route: 065
     Dates: start: 20240205
  3. MABTHERA [Suspect]
     Active Substance: RITUXIMAB
     Indication: Diffuse large B-cell lymphoma
     Dosage: R-DA-EPOCH, R-COP
     Route: 041
     Dates: start: 202103
  4. MABTHERA [Suspect]
     Active Substance: RITUXIMAB
     Dosage: POLA-BR
     Route: 041
     Dates: start: 20240205
  5. GLOFITAMAB [Concomitant]
     Active Substance: GLOFITAMAB
     Indication: Diffuse large B-cell lymphoma
     Route: 065
     Dates: start: 20240325
  6. GLOFITAMAB [Concomitant]
     Active Substance: GLOFITAMAB
     Route: 065
     Dates: start: 20240401
  7. GLOFITAMAB [Concomitant]
     Active Substance: GLOFITAMAB
     Route: 065
     Dates: start: 20240408
  8. CYCLOPHOSPHAMIDE [Concomitant]
     Active Substance: CYCLOPHOSPHAMIDE
     Indication: Diffuse large B-cell lymphoma
     Dates: start: 202103
  9. BENDAMUSTINE [Concomitant]
     Active Substance: BENDAMUSTINE
     Indication: Diffuse large B-cell lymphoma
     Dates: start: 20240205
  10. ZANUBRUTINIB [Concomitant]
     Active Substance: ZANUBRUTINIB
     Indication: Diffuse large B-cell lymphoma
     Route: 048
  11. LENALIDOMIDE [Concomitant]
     Active Substance: LENALIDOMIDE
     Indication: Diffuse large B-cell lymphoma
     Route: 048
  12. PREDNISONE [Concomitant]
     Active Substance: PREDNISONE
     Indication: Diffuse large B-cell lymphoma
  13. DAUNORUBICIN [Concomitant]
     Active Substance: DAUNORUBICIN
     Indication: Diffuse large B-cell lymphoma
     Dates: start: 202103
  14. CYTARABINE [Concomitant]
     Active Substance: CYTARABINE
     Indication: Diffuse large B-cell lymphoma
     Dates: start: 202103
  15. VINCRISTINE [Concomitant]
     Active Substance: VINCRISTINE
     Indication: Diffuse large B-cell lymphoma
  16. ETOPOSIDE [Concomitant]
     Active Substance: ETOPOSIDE
  17. MESNA [Concomitant]
     Active Substance: MESNA
  18. CARBOPLATIN [Concomitant]
     Active Substance: CARBOPLATIN
  19. IFOSFAMIDE [Concomitant]
     Active Substance: IFOSFAMIDE
  20. TUCIDINOSTAT [Concomitant]
     Active Substance: TUCIDINOSTAT

REACTIONS (2)
  - Off label use [Unknown]
  - No adverse event [Unknown]
